FAERS Safety Report 9283624 (Version 1)
Quarter: 2013Q2

REPORT INFORMATION
  Report Type: Spontaneous
  Country: CH (occurrence: CH)
  Receive Date: 20130510
  Receipt Date: 20130510
  Transmission Date: 20140414
  Serious: Yes (Hospitalization)
  Sender: FDA-Public Use
  Company Number: PHHY2013CH044513

PATIENT
  Age: 52 Year
  Sex: Female

DRUGS (12)
  1. AMITRIPTYLINE [Suspect]
     Indication: DEPRESSION
     Dosage: 50 MG, UNK
     Route: 048
  2. QUETIAPINE [Suspect]
     Dosage: 50 MG, UNK
     Route: 048
     Dates: end: 20130314
  3. QUETIAPINE [Suspect]
     Dosage: 150 MG, UNK
     Dates: start: 20130315
  4. OXYCODONE HYDROCHLORIDE [Suspect]
     Dosage: 20 MG, UNK
  5. PREGABALIN [Concomitant]
     Dosage: 150 MG, BID
     Route: 048
  6. CLONAZEPAM [Concomitant]
     Dosage: 0.25 MG, QD
     Route: 048
  7. BACLOFEN [Concomitant]
     Dosage: 15 MG, QD
     Route: 048
  8. PARACETAMOL [Concomitant]
     Dosage: 1 G, TID
     Route: 048
  9. LEVOTHYROXIN [Concomitant]
     Dosage: 0.1 MG, QD
     Route: 048
  10. TIZANIDINA [Concomitant]
     Dosage: 4 MG, QID
     Route: 048
  11. ASPIRIN CARDIO [Concomitant]
     Dosage: 100 MG, QD
     Route: 048
  12. PANTOPRAZOL [Concomitant]
     Dosage: 40 MG, QD
     Route: 048

REACTIONS (4)
  - Serotonin syndrome [Unknown]
  - Abdominal pain [Unknown]
  - Pyrexia [Unknown]
  - Altered state of consciousness [Unknown]
